FAERS Safety Report 8575605-7 (Version None)
Quarter: 2012Q3

REPORT INFORMATION
  Report Type: 
  Country: None (occurrence: None)
  Receive Date: 20120807
  Receipt Date: 20120726
  Transmission Date: 20120928
  Serious: Yes (Hospitalization)
  Sender: FDA-Public Use
  Company Number: FR-ASTELLAS-2012EU005581

PATIENT
  Sex: Female

DRUGS (4)
  1. BACTRIM [Concomitant]
     Indication: PROPHYLAXIS
     Dosage: UNK
     Route: 065
     Dates: start: 20120518
  2. TACROLIMUS [Suspect]
     Dosage: UNK
     Route: 065
     Dates: end: 20120615
  3. PROGRAF [Suspect]
     Dosage: UNK
     Route: 065
     Dates: start: 20120516, end: 20120604
  4. VALGANCICLOVIR [Concomitant]
     Indication: ANTIVIRAL PROPHYLAXIS
     Dosage: UNK
     Route: 065
     Dates: start: 20120519

REACTIONS (1)
  - COMPLICATIONS OF TRANSPLANTED KIDNEY [None]
